FAERS Safety Report 15901624 (Version 1)
Quarter: 2019Q1

REPORT INFORMATION
  Report Type: Spontaneous
  Country: US (occurrence: US)
  Receive Date: 20190109
  Receipt Date: 20190109
  Transmission Date: 20190417
  Serious: Yes (Death)
  Sender: FDA-Public Use
  Company Number: None

PATIENT
  Age: 56 Year
  Sex: Male
  Weight: 89.9 kg

DRUGS (1)
  1. PEMBROLIZUMAB. [Suspect]
     Active Substance: PEMBROLIZUMAB
     Indication: NON-SMALL CELL LUNG CANCER
     Dosage: ?          OTHER FREQUENCY:OTHER;?
     Route: 042
     Dates: end: 20180713

REACTIONS (4)
  - Serotonin syndrome [None]
  - Autoimmune hepatitis [None]
  - Metastases to central nervous system [None]
  - Infection [None]

NARRATIVE: CASE EVENT DATE: 20170630
